FAERS Safety Report 5399098-6 (Version None)
Quarter: 2007Q3

REPORT INFORMATION
  Report Type: 
  Country: None (occurrence: None)
  Receive Date: 20070727
  Receipt Date: 20070119
  Transmission Date: 20080115
  Serious: No
  Sender: FDA-Public Use
  Company Number: A0636354A

PATIENT
  Age: 29 Year
  Sex: Female

DRUGS (2)
  1. LOTRONEX [Suspect]
     Indication: IRRITABLE BOWEL SYNDROME
     Dosage: 1MG PER DAY
     Route: 048
     Dates: start: 20060930, end: 20061130
  2. NO CONCURRENT MEDICATIONS [Concomitant]

REACTIONS (1)
  - DRUG EFFECT DECREASED [None]
